FAERS Safety Report 9536841 (Version 2)
Quarter: 2014Q1

REPORT INFORMATION
  Report Type: Spontaneous
  Country: GB (occurrence: GB)
  Receive Date: 20130919
  Receipt Date: 20140108
  Transmission Date: 20141002
  Serious: Yes (Life-Threatening, Hospitalization)
  Sender: FDA-Public Use
  Company Number: GB-JNJFOC-20130907887

PATIENT
  Age: 65 Year
  Sex: Female

DRUGS (3)
  1. HALDOL [Suspect]
     Indication: MANIA
     Route: 048
  2. HALDOL [Suspect]
     Indication: MANIA
     Route: 048
  3. HALDOL [Suspect]
     Indication: MANIA
     Route: 048
     Dates: start: 20120606, end: 20130311

REACTIONS (2)
  - Pneumonia [Recovered/Resolved]
  - Sleep apnoea syndrome [Unknown]
